FAERS Safety Report 7693030-8 (Version None)
Quarter: 2011Q3

REPORT INFORMATION
  Report Type: 
  Country: None (occurrence: None)
  Receive Date: 20110815
  Receipt Date: 20110803
  Transmission Date: 20111222
  Serious: Yes (Hospitalization, Disabling)
  Sender: FDA-Public Use
  Company Number: 2008-02889

PATIENT
  Age: 56 Year
  Sex: Male
  Weight: 55 kg

DRUGS (4)
  1. VALACYCLOVIR [Suspect]
  2. INNOHEP [Concomitant]
  3. VELCADE [Suspect]
     Indication: MULTIPLE MYELOMA
     Dosage: 2 MG
     Dates: start: 20080609, end: 20080821
  4. DEXAMETHASONE [Suspect]
     Indication: MULTIPLE MYELOMA
     Dosage: 20 MG
     Dates: start: 20080721, end: 20080821

REACTIONS (4)
  - RECTAL HAEMORRHAGE [None]
  - FATIGUE [None]
  - DECREASED APPETITE [None]
  - HAEMORRHOIDS [None]
